FAERS Safety Report 10404938 (Version 1)
Quarter: 2014Q3

REPORT INFORMATION
  Report Type: Spontaneous
  Country: US (occurrence: None)
  Receive Date: 20140820
  Receipt Date: 20140820
  Transmission Date: 20150326
  Serious: Yes (Other)
  Sender: FDA-Public Use
  Company Number: 2014LOR00002

PATIENT
  Age: 66 Year
  Sex: Female
  Weight: 46.7 kg

DRUGS (6)
  1. MINOCYCLINE [Suspect]
     Active Substance: MINOCYCLINE\MINOCYCLINE HYDROCHLORIDE
     Indication: ROSACEA
     Dates: start: 20140619, end: 20140715
  2. BONIVA [Concomitant]
     Active Substance: IBANDRONATE SODIUM
  3. ANTHELIOS 40 [Suspect]
     Active Substance: AVOBENZONE\ECAMSULE\OCTOCRYLENE
     Indication: PROPHYLAXIS AGAINST SOLAR RADIATION
     Route: 061
     Dates: start: 20140621
  4. SYNTHROID [Concomitant]
     Active Substance: LEVOTHYROXINE SODIUM
  5. CLONAZEPAM. [Concomitant]
     Active Substance: CLONAZEPAM
  6. SUNSCREEN SPF 60 [Concomitant]

REACTIONS (4)
  - Systemic lupus erythematosus [None]
  - Musculoskeletal stiffness [None]
  - Discomfort [None]
  - Joint stiffness [None]

NARRATIVE: CASE EVENT DATE: 20140622
